FAERS Safety Report 9021584 (Version 1)
Quarter: 2013Q1

REPORT INFORMATION
  Report Type: Spontaneous
  Country: US (occurrence: US)
  Receive Date: 20130119
  Receipt Date: 20130119
  Transmission Date: 20140127
  Serious: Yes (Death)
  Sender: FDA-Public Use
  Company Number: US-UCBSA-075274

PATIENT
  Age: 53 Year
  Sex: Male

DRUGS (6)
  1. ALPRAZOLAM [Suspect]
  2. HEROIN [Suspect]
  3. CODEINE [Suspect]
  4. OLANZAPINE [Suspect]
  5. DEXTROMETHORPHAN [Suspect]
  6. FLUOXETINE [Suspect]

REACTIONS (2)
  - Cardio-respiratory arrest [Fatal]
  - Toxicity to various agents [Fatal]
